FAERS Safety Report 23966928 (Version 2)
Quarter: 2024Q2

REPORT INFORMATION
  Report Type: Spontaneous
  Country: US (occurrence: US)
  Receive Date: 20240612
  Receipt Date: 20240616
  Transmission Date: 20240717
  Serious: No
  Sender: FDA-Public Use
  Company Number: US-IPSEN Group, Research and Development-2024-11046

PATIENT
  Age: 52 Year
  Sex: Female

DRUGS (6)
  1. DYSPORT [Suspect]
     Active Substance: ABOBOTULINUMTOXINA
     Indication: Skin wrinkling
     Dosage: 24 UNITS TO THE GLABELLA, 22 UNITS OF DYSPORT TO THE FOREHEAD, 18 UNITS ON EACH SIDE TO THE CROWS FE
     Route: 065
     Dates: start: 20240430, end: 20240430
  2. DYSPORT [Suspect]
     Active Substance: ABOBOTULINUMTOXINA
     Indication: Skin wrinkling
     Dosage: 4 UNITS OF DYSPORT TO EACH SIDE ON THE LATERAL ASPECT OF THE GLABELLA
     Route: 065
     Dates: start: 20240514, end: 20240514
  3. DYSPORT [Suspect]
     Active Substance: ABOBOTULINUMTOXINA
     Indication: Off label use
  4. DYSPORT [Suspect]
     Active Substance: ABOBOTULINUMTOXINA
     Indication: Skin wrinkling
  5. PREMARIN [Concomitant]
     Active Substance: ESTROGENS, CONJUGATED
     Indication: Hormone replacement therapy
  6. ADDERALL [Concomitant]
     Active Substance: AMPHETAMINE ASPARTATE\AMPHETAMINE SULFATE\DEXTROAMPHETAMINE SACCHARATE\DEXTROAMPHETAMINE SULFATE
     Indication: Attention deficit hyperactivity disorder
     Dosage: AS NEEDED

REACTIONS (13)
  - Product preparation error [Unknown]
  - Off label use [Unknown]
  - Off label use [Unknown]
  - Drug ineffective [Unknown]
  - Brain fog [Not Recovered/Not Resolved]
  - Diplopia [Not Recovered/Not Resolved]
  - Vision blurred [Not Recovered/Not Resolved]
  - Somnolence [Not Recovered/Not Resolved]
  - Dry eye [Not Recovered/Not Resolved]
  - Facial discomfort [Not Recovered/Not Resolved]
  - Fatigue [Not Recovered/Not Resolved]
  - Loss of personal independence in daily activities [Not Recovered/Not Resolved]
  - Eye pruritus [Not Recovered/Not Resolved]

NARRATIVE: CASE EVENT DATE: 20240430
